FAERS Safety Report 4501651-6 (Version None)
Quarter: 2004Q4

REPORT INFORMATION
  Report Type: 
  Country: None (occurrence: None)
  Receive Date: 20041109
  Receipt Date: 20041025
  Transmission Date: 20050328
  Serious: Yes (Hospitalization)
  Sender: FDA-Public Use
  Company Number: 2004AP04814

PATIENT
  Age: 63 Year
  Sex: Male

DRUGS (16)
  1. XYLOCAINE [Suspect]
     Indication: ENDOSCOPY
     Dates: start: 20040906, end: 20040906
  2. XYLOCAINE [Suspect]
     Indication: ENDOSCOPY
     Dosage: 5 ML TP
     Dates: start: 20040906, end: 20040906
  3. CARBOCAINE [Suspect]
     Indication: ANAESTHESIA
     Dosage: 10 ML WEEK
     Dates: start: 20040421, end: 20040701
  4. THEO-DUR [Concomitant]
  5. ATOCK [Concomitant]
  6. SPIROPENT [Concomitant]
  7. ULCERLMIN [Concomitant]
  8. SEVEN EP [Concomitant]
  9. GASTER D [Concomitant]
  10. FLUTICASONE PROPIONATE [Concomitant]
  11. ARTZ [Concomitant]
  12. ALESION [Concomitant]
  13. ACINON [Concomitant]
  14. LAC B [Concomitant]
  15. AMARYL [Concomitant]
  16. PENFILL R [Concomitant]

REACTIONS (6)
  - ANAESTHETIC COMPLICATION [None]
  - DRUG ERUPTION [None]
  - DRUG HYPERSENSITIVITY [None]
  - PYELONEPHRITIS [None]
  - PYREXIA [None]
  - TOXIC SKIN ERUPTION [None]
